FAERS Safety Report 21102092 (Version 4)
Quarter: 2023Q1

REPORT INFORMATION
  Report Type: Spontaneous
  Country: US (occurrence: US)
  Receive Date: 20220719
  Receipt Date: 20230120
  Transmission Date: 20230418
  Serious: Yes (Death, Hospitalization, Disabling, Other)
  Sender: FDA-Public Use
  Company Number: US-009507513-2207USA003811

PATIENT
  Sex: Female
  Weight: 102 kg

DRUGS (8)
  1. WELIREG [Suspect]
     Active Substance: BELZUTIFAN
     Indication: Renal cell carcinoma
     Dosage: 3 PILLS DAILY
     Route: 048
     Dates: start: 20220628
  2. AMLODIPINE [Concomitant]
     Active Substance: AMLODIPINE BESYLATE
  3. ASPIRIN [Concomitant]
     Active Substance: ASPIRIN
  4. VITAMIN C [Concomitant]
     Active Substance: ASCORBIC ACID
  5. BIOTIN [Concomitant]
     Active Substance: BIOTIN
  6. CEFIXIME [Concomitant]
     Active Substance: CEFIXIME
  7. NEURONTIN [Concomitant]
     Active Substance: GABAPENTIN
  8. PRILOSEC [Concomitant]
     Active Substance: OMEPRAZOLE MAGNESIUM

REACTIONS (12)
  - Cerebral haemorrhage [Fatal]
  - Coma [Unknown]
  - Pain [Unknown]
  - Intracranial meningioma malignant [Unknown]
  - Hydrocephalus [Unknown]
  - Subarachnoid haemorrhage [Unknown]
  - Intraventricular haemorrhage [Unknown]
  - Cerebral mass effect [Unknown]
  - Adverse event [Unknown]
  - Blood pressure abnormal [Unknown]
  - Sinus disorder [Unknown]
  - Blood creatinine increased [Unknown]

NARRATIVE: CASE EVENT DATE: 20220101
